FAERS Safety Report 4887182-2 (Version None)
Quarter: 2005Q4

REPORT INFORMATION
  Report Type: 
  Country: None (occurrence: None)
  Receive Date: 20051223
  Receipt Date: 20050729
  Transmission Date: 20060501
  Serious: Yes (Hospitalization, Other)
  Sender: FDA-Public Use
  Company Number: USA030228354

PATIENT
  Age: 60 Year
  Sex: Female
  Weight: 53 kg

DRUGS (7)
  1. HUMALOG [Suspect]
     Indication: DIABETES MELLITUS
     Dosage: 13 U
     Dates: start: 20010101
  2. ULTRA-LENTE ILETIN INSULIN [Suspect]
     Indication: DIABETES MELLITUS
     Dates: start: 19630101, end: 19800501
  3. HUMULIN U [Suspect]
     Indication: DIABETES MELLITUS
     Dosage: 11 U/1 DAY
     Dates: start: 20031026
  4. HUMULIN L [Suspect]
     Indication: DIABETES MELLITUS
     Dates: start: 20050101
  5. HUMULIN N [Suspect]
  6. NOVOLIN N [Concomitant]
  7. NOVOLOG [Concomitant]

REACTIONS (15)
  - ARTHRALGIA [None]
  - BLINDNESS TRANSIENT [None]
  - BLOOD GLUCOSE DECREASED [None]
  - BLOOD GLUCOSE INCREASED [None]
  - DIABETIC RETINOPATHY [None]
  - DIZZINESS [None]
  - EYE HAEMORRHAGE [None]
  - FEELING ABNORMAL [None]
  - HYPERKERATOSIS [None]
  - HYPOGLYCAEMIA UNAWARENESS [None]
  - ILL-DEFINED DISORDER [None]
  - INJECTION SITE MASS [None]
  - PAIN IN EXTREMITY [None]
  - STOMACH DISCOMFORT [None]
  - WEIGHT DECREASED [None]
